FAERS Safety Report 4703639-9 (Version None)
Quarter: 2005Q2

REPORT INFORMATION
  Report Type: 
  Country: None (occurrence: None)
  Receive Date: 20050628
  Receipt Date: 20050608
  Transmission Date: 20051028
  Serious: Yes (Other)
  Sender: FDA-Public Use
  Company Number: USA040670128

PATIENT
  Age: 73 Year
  Sex: Female
  Weight: 69 kg

DRUGS (3)
  1. FORTEO [Suspect]
     Indication: OSTEOPOROSIS
     Dosage: 20 UG DAY
     Dates: start: 20040301
  2. EVISTA [Suspect]
  3. MOTRIN [Concomitant]

REACTIONS (23)
  - ASTHENIA [None]
  - BLOOD HOMOCYSTEINE INCREASED [None]
  - BLOOD TRIGLYCERIDES INCREASED [None]
  - BREAST MASS [None]
  - BREAST PAIN [None]
  - CARDIAC MURMUR [None]
  - DIZZINESS [None]
  - EXTRASYSTOLES [None]
  - GINGIVAL INJURY [None]
  - HEADACHE [None]
  - INJECTION SITE ERYTHEMA [None]
  - JOINT SWELLING [None]
  - MEDICAL DEVICE COMPLICATION [None]
  - NERVOUS SYSTEM DISORDER [None]
  - PHARMACEUTICAL PRODUCT COMPLAINT [None]
  - PITTING OEDEMA [None]
  - RAYNAUD'S PHENOMENON [None]
  - RENAL DISORDER [None]
  - RENAL FAILURE ACUTE [None]
  - THERAPEUTIC RESPONSE UNEXPECTED [None]
  - TREMOR [None]
  - URINE LEUKOCYTE ESTERASE POSITIVE [None]
  - WHITE BLOOD CELL COUNT INCREASED [None]
